FAERS Safety Report 9382532 (Version 1)
Quarter: 2013Q3

REPORT INFORMATION
  Report Type: Spontaneous
  Country: US (occurrence: US)
  Receive Date: 20130703
  Receipt Date: 20130703
  Transmission Date: 20140515
  Serious: Yes (Life-Threatening, Other)
  Sender: FDA-Public Use
  Company Number: CHPA2013US010603

PATIENT
  Age: 68 Year
  Sex: Female

DRUGS (9)
  1. VOLTAREN GEL [Suspect]
     Indication: OSTEOPOROSIS
     Dosage: 4 G, BID
     Route: 061
     Dates: start: 20130623, end: 20130628
  2. LASIX [Concomitant]
     Indication: OEDEMA PERIPHERAL
     Dosage: 40 MG, UNK
  3. DILTIAZEM [Concomitant]
     Indication: HYPERTENSION
     Dosage: 120 MG, BID
  4. DILTIAZEM [Concomitant]
     Dosage: 60 MG, UNK
  5. POTASSIUM [Concomitant]
     Indication: MINERAL SUPPLEMENTATION
     Dosage: UNK, TID
  6. POTASSIUM [Concomitant]
     Dosage: UNK, 6QD WHEN SHE TAKES LASIX
  7. HYDROCHLOROTHIAZIDE [Concomitant]
     Indication: DIURETIC THERAPY
  8. OXYCODONE [Concomitant]
     Indication: ARTHRALGIA
  9. CLONIDINE [Concomitant]
     Indication: HYPERTENSION
     Dosage: 0.1 MG, UNK

REACTIONS (13)
  - Feeling abnormal [Recovered/Resolved]
  - Hypertension [Recovered/Resolved]
  - Hypotension [Recovered/Resolved]
  - Confusional state [Recovered/Resolved]
  - Insomnia [Recovered/Resolved]
  - Restlessness [Recovered/Resolved]
  - Body temperature decreased [Recovered/Resolved]
  - Chills [Recovered/Resolved]
  - Vision blurred [Recovered/Resolved]
  - Dysuria [Recovered/Resolved]
  - Tremor [Not Recovered/Not Resolved]
  - Off label use [Unknown]
  - Drug dispensed to wrong patient [Unknown]
